FAERS Safety Report 5930453-9 (Version None)
Quarter: 2008Q4

REPORT INFORMATION
  Report Type: 
  Country: None (occurrence: None)
  Receive Date: 20081022
  Receipt Date: 20081016
  Transmission Date: 20090506
  Serious: Yes (Hospitalization)
  Sender: FDA-Public Use
  Company Number: JPI-P-005099

PATIENT
  Age: 79 Year
  Sex: Male

DRUGS (8)
  1. XYREM [Suspect]
     Indication: CATAPLEXY
     Dosage: STOPPED XYREM BETWEEN 08 + 10-OCT-2008), ORAL
     Route: 048
     Dates: start: 20080906, end: 20081001
  2. XYREM [Suspect]
     Indication: NARCOLEPSY
     Dosage: STOPPED XYREM BETWEEN 08 + 10-OCT-2008), ORAL
     Route: 048
     Dates: start: 20080906, end: 20081001
  3. DIVALPROEX SODIUM [Concomitant]
  4. RISPERDAL [Concomitant]
  5. CLOPIDOGREL BISULFATE [Concomitant]
  6. CARVEDILOL [Concomitant]
  7. AMLODIPINE [Concomitant]
  8. INSULIN (INSULIN) [Concomitant]

REACTIONS (7)
  - ABNORMAL BEHAVIOUR [None]
  - ACTIVITIES OF DAILY LIVING IMPAIRED [None]
  - BELLIGERENCE [None]
  - COMMUNICATION DISORDER [None]
  - DYSPNOEA [None]
  - HOSTILITY [None]
  - SUICIDAL IDEATION [None]
